FAERS Safety Report 8999708 (Version 3)
Quarter: 2013Q1

REPORT INFORMATION
  Report Type: Report from Study
  Country: KR (occurrence: KR)
  Receive Date: 20130102
  Receipt Date: 20130107
  Transmission Date: 20140127
  Serious: Yes (Hospitalization)
  Sender: FDA-Public Use
  Company Number: KR-GLAXOSMITHKLINE-B0833373B

PATIENT
  Age: 76 Year
  Sex: Male
  Weight: 48 kg

DRUGS (19)
  1. VILANTEROL TRIFENATATE [Suspect]
     Indication: CHRONIC OBSTRUCTIVE PULMONARY DISEASE
     Dates: start: 20120724
  2. METHYLPREDNISOLONE [Suspect]
     Indication: DYSPNOEA
     Dosage: 125MG PER DAY
     Route: 042
     Dates: start: 20121224
  3. IPRATROPIUM BROMIDE [Suspect]
     Indication: DYSPNOEA
     Dosage: 2ML PER DAY
     Route: 055
     Dates: start: 20121224, end: 20121224
  4. IPRATROPIUM BROMIDE [Suspect]
     Dosage: 2ML FOUR TIMES PER DAY
     Route: 055
     Dates: start: 20121226, end: 20121231
  5. VENTOLIN [Suspect]
     Indication: CHRONIC OBSTRUCTIVE PULMONARY DISEASE
     Dosage: 2.5ML PER DAY
     Route: 055
     Dates: start: 20121224, end: 20121230
  6. VENTOLIN [Suspect]
     Indication: DYSPNOEA
     Dosage: 2.5ML PER DAY
     Route: 055
     Dates: start: 20121231, end: 20121231
  7. BUDESONIDE [Suspect]
     Indication: CHRONIC OBSTRUCTIVE PULMONARY DISEASE
     Route: 055
     Dates: start: 20121224, end: 20121224
  8. BUDESONIDE [Suspect]
     Indication: DYSPNOEA
     Dates: start: 20121225, end: 20121228
  9. BUDESONIDE [Suspect]
     Dosage: 500MCG THREE TIMES PER DAY
     Route: 055
     Dates: start: 20121230, end: 20121230
  10. BUDESONIDE [Suspect]
     Dosage: 500MCG PER DAY
     Route: 055
     Dates: start: 20121231, end: 20121231
  11. MOXIFLOXACIN [Suspect]
     Indication: DYSPNOEA
     Dosage: 400MG PER DAY
     Route: 048
     Dates: start: 20121231, end: 201301
  12. MOXIFLOXACIN [Suspect]
     Route: 048
     Dates: start: 20121231, end: 201301
  13. PERINDOPRIL [Concomitant]
     Indication: MYOCARDIAL INFARCTION
     Dosage: 4MG PER DAY
     Route: 048
     Dates: start: 20100705
  14. ACETYLSALICYLIC ACID [Concomitant]
     Indication: MYOCARDIAL INFARCTION
     Dosage: 100MG PER DAY
     Route: 048
     Dates: start: 20100531
  15. ROSUVASTATIN [Concomitant]
     Indication: MYOCARDIAL INFARCTION
     Dosage: 20MG PER DAY
     Route: 048
     Dates: start: 20100601
  16. ERDOSTEINE [Concomitant]
     Indication: CHRONIC OBSTRUCTIVE PULMONARY DISEASE
     Dosage: 300MG TWICE PER DAY
     Route: 048
     Dates: start: 20100722
  17. THEOPHYLLINE [Concomitant]
     Indication: CHRONIC OBSTRUCTIVE PULMONARY DISEASE
     Dosage: 130MG TWICE PER DAY
     Route: 048
     Dates: start: 20100722
  18. DICLOFENAC [Concomitant]
     Indication: CATARACT OPERATION
     Dosage: 2DROP TWICE PER DAY
     Dates: start: 20120829
  19. FLUOROMETHOLONE [Concomitant]
     Indication: CATARACT OPERATION
     Dosage: 2DROP TWICE PER DAY
     Dates: start: 20120906

REACTIONS (1)
  - Dyspnoea [Not Recovered/Not Resolved]
